FAERS Safety Report 7118902-4 (Version None)
Quarter: 2010Q4

REPORT INFORMATION
  Report Type: 
  Country: None (occurrence: None)
  Receive Date: 20101123
  Receipt Date: 20101101
  Transmission Date: 20110411
  Serious: Yes (Hospitalization)
  Sender: FDA-Public Use
  Company Number: GB-ROCHE-633810

PATIENT
  Weight: 72.7 kg

DRUGS (4)
  1. MYCOPHENOLATE MOFETIL [Suspect]
     Indication: ANTI-NEUTROPHIL CYTOPLASMIC ANTIBODY POSITIVE VASCULITIS
     Dosage: FREQUENCY:1.5G NOCTE
     Route: 065
     Dates: start: 20080725
  2. MYCOPHENOLATE MOFETIL [Suspect]
     Dosage: FREQUENCY:1.5G NOCTE
     Route: 065
     Dates: start: 20090414, end: 20090426
  3. PREDNISOLONE [Concomitant]
  4. PREDNISOLONE [Concomitant]
     Dates: start: 20090421

REACTIONS (1)
  - VASCULITIS [None]
